FAERS Safety Report 8905658 (Version 2)
Quarter: 2013Q1

REPORT INFORMATION
  Report Type: Spontaneous
  Country: JP (occurrence: JP)
  Receive Date: 20121113
  Receipt Date: 20130214
  Transmission Date: 20140127
  Serious: Yes (Other)
  Sender: FDA-Public Use
  Company Number: JP-OTSUKA-JP-2012-16799

PATIENT
  Age: 85 Year
  Sex: Female

DRUGS (29)
  1. SAMSCA [Suspect]
     Indication: OEDEMA
     Dosage: 7.5 MG MILLIGRAM(S), QAM
     Route: 048
     Dates: start: 20121018, end: 20121101
  2. LASIX [Suspect]
     Dosage: 80 MG MILLIGRAM(S), DAILY DOSE
     Route: 042
     Dates: start: 20121011
  3. LASIX [Suspect]
     Dosage: 80 MG MILLIGRAM(S), QD
     Route: 042
     Dates: start: 20121018, end: 20121018
  4. LASIX [Suspect]
     Dosage: 20 MG MILLIGRAM(S), QD
     Route: 042
     Dates: start: 20121024, end: 20121024
  5. LASIX [Suspect]
     Dosage: 20 MG MILLIGRAM(S), BID
     Route: 042
     Dates: start: 20121025, end: 20121029
  6. LASIX [Suspect]
     Dosage: 80 MG MILLIGRAM(S), QAM
     Route: 048
     Dates: start: 20121020, end: 20121025
  7. LASIX [Suspect]
     Dosage: 40 MG MILLIGRAM(S), QAM
     Route: 048
     Dates: start: 20121026, end: 20121030
  8. DOBUTREX [Concomitant]
     Dosage: 600 MG MILLIGRAM(S), QD
     Route: 041
  9. DOBUTREX [Concomitant]
     Dosage: 600 MG MILLIGRAM(S), QD
     Route: 041
     Dates: start: 20121018, end: 20121018
  10. SOLITA-T3 [Concomitant]
     Dosage: 500 ML MILLILITRE(S), QD
     Route: 041
  11. SOLITA-T3 [Concomitant]
     Dosage: 500 ML MILLILITRE(S), QD
     Route: 041
     Dates: start: 20121018, end: 20121019
  12. SODIUM CHLORIDE [Concomitant]
     Dosage: 4 G GRAM(S), QD
     Route: 041
  13. SODIUM CHLORIDE [Concomitant]
     Dosage: 4 G GRAM(S), QD
     Route: 041
     Dates: start: 20121018, end: 20121019
  14. DIGOSIN [Concomitant]
     Dosage: 0.125 MG MILLIGRAM(S), QD
     Route: 048
     Dates: start: 20121019, end: 20121101
  15. KETOBUN A [Concomitant]
     Dosage: 100 MG MILLIGRAM(S), QAM
     Route: 048
     Dates: start: 20121019, end: 20121101
  16. MUCOSTA [Concomitant]
     Dosage: 100 MG MILLIGRAM(S), TID
     Route: 048
     Dates: start: 20121019, end: 20121101
  17. MUSTRICK [Concomitant]
     Dosage: 100 MG MILLIGRAM(S), TID
     Route: 048
     Dates: start: 20121019, end: 20121101
  18. MEVAN [Concomitant]
     Dosage: 10 MG MILLIGRAM(S), QPM
     Route: 048
     Dates: start: 20121019, end: 20121101
  19. SENNAL [Concomitant]
     Dosage: 24 MG MILLIGRAM(S), HS
     Route: 048
     Dates: start: 20121019, end: 20121101
  20. AZUNOL [Concomitant]
     Dosage: QS, QD
     Route: 061
     Dates: start: 20121019
  21. ANHIBA [Concomitant]
     Dosage: 400 MG MILLIGRAM(S), DAILY DOSE
     Route: 054
     Dates: start: 20121024, end: 20121024
  22. UNASYN S [Concomitant]
     Dosage: 3 G GRAM(S), QD
     Route: 041
     Dates: start: 20121024, end: 20121024
  23. UNASYN S [Concomitant]
     Dosage: 6 G GRAM(S), DAILY DOSE
     Route: 041
     Dates: start: 20121025, end: 20121101
  24. SEISHOKU [Concomitant]
     Dosage: 100 ML MILLILITRE(S), QD
     Route: 041
     Dates: start: 20121024, end: 20121024
  25. SEISHOKU [Concomitant]
     Dosage: 100 ML MILLILITRE(S), BID
     Route: 041
     Dates: start: 20121025, end: 20121101
  26. LACTEC [Concomitant]
     Dosage: 500 ML MILLILITRE(S), QD
     Route: 041
     Dates: start: 20121024, end: 20121024
  27. LACTEC [Concomitant]
     Dosage: 500 ML MILLILITRE(S), BID
     Route: 041
     Dates: start: 20121025, end: 20121031
  28. LACTEC [Concomitant]
     Dosage: 500 ML MILLILITRE(S), QD
     Route: 041
     Dates: start: 20121101, end: 20121101
  29. ALDACTONE A [Concomitant]
     Dosage: 25 MG MILLIGRAM(S), QAM
     Route: 048
     Dates: start: 20121026, end: 20121101

REACTIONS (3)
  - Blood urea increased [Recovering/Resolving]
  - C-reactive protein increased [Unknown]
  - Dehydration [Unknown]
